FAERS Safety Report 6866102-5 (Version None)
Quarter: 2010Q3

REPORT INFORMATION
  Report Type: 
  Country: None (occurrence: None)
  Receive Date: 20100722
  Receipt Date: 20100716
  Transmission Date: 20110219
  Serious: Yes (Hospitalization)
  Sender: FDA-Public Use
  Company Number: US-ELI_LILLY_AND_COMPANY-US200912003982

PATIENT
  Sex: Female

DRUGS (6)
  1. HUMALOG [Suspect]
     Indication: DIABETES MELLITUS
     Dosage: 16 U, 3/D
  2. HUMALOG [Suspect]
     Dosage: 16 U, 3/D
  3. ASPIRIN [Concomitant]
  4. NIACIN [Concomitant]
     Indication: BLOOD TRIGLYCERIDES INCREASED
     Dosage: 500 MG, DAILY (1/D)
  5. LANTUS [Concomitant]
     Indication: DIABETES MELLITUS
     Dosage: UNK, AS NEEDED
  6. GLUCOPHAGE [Concomitant]
     Indication: DIABETES MELLITUS
     Dosage: 1000 MG, 2/D

REACTIONS (3)
  - ARTHRALGIA [None]
  - CELLULITIS [None]
  - MUSCULOSKELETAL STIFFNESS [None]
